FAERS Safety Report 4277027-6 (Version None)
Quarter: 2004Q1

REPORT INFORMATION
  Report Type: 
  Country: None (occurrence: None)
  Receive Date: 20040120
  Receipt Date: 20040109
  Transmission Date: 20041129
  Serious: Yes (Hospitalization)
  Sender: FDA-Public Use
  Company Number: STA-AE-04-MTX-007

PATIENT
  Age: 58 Year
  Sex: Female

DRUGS (1)
  1. METHOTREXATE [Suspect]
     Indication: RHEUMATOID ARTHRITIS
     Dosage: 75 MG 1X PER 1 WK
     Dates: start: 19970101, end: 20000101

REACTIONS (8)
  - ANOREXIA [None]
  - C-REACTIVE PROTEIN INCREASED [None]
  - MUSCULOSKELETAL STIFFNESS [None]
  - NAUSEA [None]
  - PAIN [None]
  - RED BLOOD CELL SEDIMENTATION RATE INCREASED [None]
  - TUBERCULOSIS [None]
  - WEIGHT DECREASED [None]
